FAERS Safety Report 5657763-7 (Version None)
Quarter: 2008Q1

REPORT INFORMATION
  Report Type: 
  Country: None (occurrence: None)
  Receive Date: 20080310
  Receipt Date: 20071010
  Transmission Date: 20080703
  Serious: Yes (Hospitalization)
  Sender: FDA-Public Use
  Company Number: US-ASTRAZENECA-2007AC01971

PATIENT
  Age: 61 Year
  Sex: Male

DRUGS (5)
  1. LISINOPRIL [Suspect]
     Indication: CARDIAC FAILURE CONGESTIVE
  2. LISINOPRIL [Suspect]
     Dosage: DOSE INCREASED DUE TO WORSENING CONDITION
  3. FUROSEMIDE [Suspect]
     Indication: CARDIAC FAILURE CONGESTIVE
  4. FUROSEMIDE [Suspect]
  5. SPIRONOLACTONE [Suspect]
     Indication: CARDIAC FAILURE CONGESTIVE

REACTIONS (1)
  - HYPERKALAEMIA [None]
